FAERS Safety Report 11888514 (Version 1)
Quarter: 2016Q1

REPORT INFORMATION
  Report Type: Report from Study
  Country: CN (occurrence: CN)
  Receive Date: 20160105
  Receipt Date: 20160105
  Transmission Date: 20160526
  Serious: Yes (Other)
  Sender: FDA-Public Use
  Company Number: CN-MYLANLABS-2015M1047626

PATIENT

DRUGS (1)
  1. VINORELBINE [Suspect]
     Active Substance: VINORELBINE\VINORELBINE TARTRATE
     Indication: TRIPLE NEGATIVE BREAST CANCER
     Dosage: 25 MG/M2 ON DAYS 1 AND 8
     Route: 065

REACTIONS (1)
  - Renal impairment [Unknown]
